FAERS Safety Report 17183457 (Version 8)
Quarter: 2020Q4

REPORT INFORMATION
  Report Type: Spontaneous
  Country: BR (occurrence: BR)
  Receive Date: 20191220
  Receipt Date: 20201228
  Transmission Date: 20210113
  Serious: Yes (Hospitalization, Other)
  Sender: FDA-Public Use
  Company Number: BR-GLAXOSMITHKLINE-BR2019AMR223481

PATIENT
  Age: 51 Year
  Sex: Female

DRUGS (4)
  1. FOSTAIR [Concomitant]
     Active Substance: BECLOMETHASONE\FORMOTEROL
     Indication: PRODUCT USED FOR UNKNOWN INDICATION
     Dosage: UNK
  2. NUCALA [Suspect]
     Active Substance: MEPOLIZUMAB
     Indication: ASTHMA
     Dosage: 100 MG
     Dates: start: 20190913
  3. SALBUTAMOL [Concomitant]
     Active Substance: ALBUTEROL
     Indication: PRODUCT USED FOR UNKNOWN INDICATION
     Dosage: UNK
  4. SPIRIVA [Concomitant]
     Active Substance: TIOTROPIUM BROMIDE MONOHYDRATE
     Indication: PRODUCT USED FOR UNKNOWN INDICATION
     Dosage: UNK

REACTIONS (14)
  - Vasculitis [Recovered/Resolved]
  - Tooth extraction [Unknown]
  - Asthma [Unknown]
  - Eosinophilic granulomatosis with polyangiitis [Recovered/Resolved]
  - Ill-defined disorder [Unknown]
  - Swelling [Unknown]
  - Hypogammaglobulinaemia [Unknown]
  - Upper respiratory tract infection [Recovered/Resolved]
  - Dyspnoea [Unknown]
  - Bronchospasm [Recovered/Resolved]
  - Teeth brittle [Unknown]
  - Fatigue [Unknown]
  - Therapy interrupted [Unknown]
  - Walking disability [Unknown]

NARRATIVE: CASE EVENT DATE: 201912
